FAERS Safety Report 10072116 (Version 1)
Quarter: 2014Q2

REPORT INFORMATION
  Report Type: Spontaneous
  Country: US (occurrence: None)
  Receive Date: 20140410
  Receipt Date: 20140410
  Transmission Date: 20141212
  Serious: No
  Sender: FDA-Public Use
  Company Number: None

PATIENT
  Age: 64 Year
  Sex: Female
  Weight: 71.67 kg

DRUGS (2)
  1. EFFEXOR  XR [Suspect]
     Indication: ANXIETY
     Route: 048
     Dates: start: 20140128, end: 20140326
  2. VIT D [Concomitant]

REACTIONS (3)
  - Muscle spasms [None]
  - Drug withdrawal syndrome [None]
  - Formication [None]
